FAERS Safety Report 14269571 (Version 2)
Quarter: 2018Q3

REPORT INFORMATION
  Report Type: Spontaneous
  Country: US (occurrence: US)
  Receive Date: 20171211
  Receipt Date: 20180706
  Transmission Date: 20181010
  Serious: Yes (Other)
  Sender: FDA-Public Use
  Company Number: US-OTSUKA-2017_023228

PATIENT
  Sex: Male

DRUGS (5)
  1. ABILIFY [Suspect]
     Active Substance: ARIPIPRAZOLE
     Indication: DEPRESSION
     Dosage: 10 MG, QD
     Route: 065
  2. ABILIFY [Suspect]
     Active Substance: ARIPIPRAZOLE
     Dosage: 20 MG, QD
     Route: 065
     Dates: end: 201312
  3. ABILIFY [Suspect]
     Active Substance: ARIPIPRAZOLE
     Indication: BIPOLAR DISORDER
     Dosage: 2 MG, QD
     Route: 065
     Dates: start: 200910
  4. ABILIFY [Suspect]
     Active Substance: ARIPIPRAZOLE
     Indication: MAJOR DEPRESSION
     Dosage: 5 MG, QD
     Route: 065
  5. ABILIFY [Suspect]
     Active Substance: ARIPIPRAZOLE
     Dosage: 15 MG, QD
     Route: 065

REACTIONS (13)
  - Suicide attempt [Unknown]
  - Suicidal ideation [Unknown]
  - Compulsive shopping [Unknown]
  - Gambling disorder [Recovered/Resolved]
  - Abnormal behaviour [Unknown]
  - Mental disorder [Unknown]
  - Compulsive hoarding [Recovered/Resolved]
  - Emotional distress [Unknown]
  - Brain injury [Unknown]
  - Sexual dysfunction [Recovered/Resolved]
  - Injury [Unknown]
  - Hyperphagia [Recovered/Resolved]
  - Bankruptcy [Unknown]
